FAERS Safety Report 16878372 (Version 1)
Quarter: 2019Q4

REPORT INFORMATION
  Report Type: Spontaneous
  Country: US (occurrence: US)
  Receive Date: 20191002
  Receipt Date: 20191002
  Transmission Date: 20200122
  Serious: Yes (Death, Other)
  Sender: FDA-Public Use
  Company Number: US-NEUROCRINE BIOSCIENCES INC.-2019NBI02818

PATIENT
  Age: 64 Year
  Sex: Male

DRUGS (2)
  1. REXULTI [Suspect]
     Active Substance: BREXPIPRAZOLE
     Indication: PSYCHOTIC DISORDER
     Dates: start: 201906
  2. INGREZZA [Suspect]
     Active Substance: VALBENAZINE
     Indication: TARDIVE DYSKINESIA

REACTIONS (11)
  - Dysphagia [Unknown]
  - Blood glucose increased [Unknown]
  - Amnesia [Unknown]
  - Muscular weakness [Unknown]
  - Gait inability [Unknown]
  - Anger [Unknown]
  - Confusional state [Unknown]
  - Lethargy [Unknown]
  - Musculoskeletal stiffness [Unknown]
  - Death [Fatal]
  - Suicidal ideation [Unknown]

NARRATIVE: CASE EVENT DATE: 20190720
